FAERS Safety Report 24090134 (Version 2)
Quarter: 2024Q3

REPORT INFORMATION
  Report Type: Spontaneous
  Country: US (occurrence: US)
  Receive Date: 20240715
  Receipt Date: 20240813
  Transmission Date: 20241016
  Serious: Yes (Other)
  Sender: CHEPLAPHARM
  Company Number: US-ROCHE-10000011779

PATIENT
  Age: 53 Year
  Sex: Female
  Weight: 71.209 kg

DRUGS (18)
  1. CLONAZEPAM [Suspect]
     Active Substance: CLONAZEPAM
     Indication: Sleep disorder
     Dosage: DAILY DOSE: 1 MILLIGRAM
     Route: 048
  2. OCREVUS [Suspect]
     Active Substance: OCRELIZUMAB
     Indication: Primary progressive multiple sclerosis
  3. PROVIGIL [Concomitant]
     Active Substance: MODAFINIL
     Indication: Fatigue
     Dosage: DAILY DOSE: 200 MILLIGRAM
     Route: 048
  4. PROVIGIL [Concomitant]
     Active Substance: MODAFINIL
     Indication: Brain fog
     Dosage: DAILY DOSE: 200 MILLIGRAM
     Route: 048
  5. VITAMIN D [Concomitant]
     Active Substance: VITAMIN D NOS
     Dosage: DAILY DOSE: 5000 IU (INTERNATIONAL UNIT)
     Route: 048
     Dates: start: 202309
  6. BENADRYL [Concomitant]
     Active Substance: DIPHENHYDRAMINE HYDROCHLORIDE
     Dosage: AT NIGHT?DAILY DOSE: 100 MILLIGRAM
     Route: 048
  7. ZYRTEC [Concomitant]
     Active Substance: CETIRIZINE HYDROCHLORIDE
     Indication: Hypersensitivity
     Dosage: AS NEEDED
     Route: 048
  8. ALBUTEROL [Concomitant]
     Active Substance: ALBUTEROL
     Indication: Asthma
     Dosage: RES[PIRATORY (INHALATION)?INHALER
     Route: 055
     Dates: start: 1990
  9. ANASTROZOLE [Concomitant]
     Active Substance: ANASTROZOLE
  10. SAVELLA [Concomitant]
     Active Substance: MILNACIPRAN HYDROCHLORIDE
  11. SERTRALINE [Concomitant]
     Active Substance: SERTRALINE HYDROCHLORIDE
  12. OXCARBAZEPINE [Concomitant]
     Active Substance: OXCARBAZEPINE
  13. METOPROLOL [Concomitant]
     Active Substance: METOPROLOL
  14. MIRENA [Concomitant]
     Active Substance: LEVONORGESTREL
  15. IMURAN [Concomitant]
     Active Substance: AZATHIOPRINE
  16. CLARITIN [Concomitant]
     Active Substance: LORATADINE
  17. TYLENOL [Concomitant]
     Active Substance: ACETAMINOPHEN
  18. IBUPROFEN [Concomitant]
     Active Substance: IBUPROFEN

REACTIONS (5)
  - Breast cancer [Not Recovered/Not Resolved]
  - Herpes zoster [Recovered/Resolved with Sequelae]
  - Paralysis [Not Recovered/Not Resolved]
  - Neuralgia [Not Recovered/Not Resolved]
  - Off label use [Unknown]

NARRATIVE: CASE EVENT DATE: 20140101
